FAERS Safety Report 10060759 (Version 1)
Quarter: 2014Q2

REPORT INFORMATION
  Report Type: Spontaneous
  Country: US (occurrence: US)
  Receive Date: 20140404
  Receipt Date: 20140404
  Transmission Date: 20141212
  Serious: No
  Sender: FDA-Public Use
  Company Number: US-009507513-1403USA013784

PATIENT
  Age: 42 Year
  Sex: Female

DRUGS (10)
  1. ISENTRESS [Suspect]
     Indication: HIV INFECTION
     Dosage: ONE ISENTRESS 400 MG TABLET TWICE DAILY
     Route: 048
     Dates: start: 201301
  2. ACETYLCYSTEINE [Concomitant]
     Dosage: UNK
  3. ACYCLOVIR [Concomitant]
     Dosage: UNK
  4. CITALOPRAM [Concomitant]
     Dosage: UNK
  5. ESTRACE [Concomitant]
     Dosage: UNK
  6. VITAMINS (UNSPECIFIED) [Concomitant]
     Dosage: UNK
  7. VIVELLE-DOT [Concomitant]
     Dosage: PATCH UNK
  8. PROGESTERONE [Concomitant]
     Dosage: UNK
     Route: 048
  9. TRUVADA [Concomitant]
     Dosage: UNK
  10. VITAMIN D (UNSPECIFIED) [Concomitant]
     Dosage: UNK

REACTIONS (1)
  - Blood potassium increased [Unknown]
